FAERS Safety Report 9197668 (Version 2)
Quarter: 2013Q2

REPORT INFORMATION
  Report Type: Spontaneous
  Country: JP (occurrence: JP)
  Receive Date: 20130328
  Receipt Date: 20130411
  Transmission Date: 20140414
  Serious: Yes (Hospitalization)
  Sender: FDA-Public Use
  Company Number: JP-PFIZER INC-2013093924

PATIENT
  Age: 63 Year
  Sex: Male

DRUGS (5)
  1. NEO-MEDROL [Suspect]
     Indication: EYELID OEDEMA
     Dosage: UNK
     Route: 061
     Dates: start: 20100506, end: 20100507
  2. RINDERON A [Suspect]
     Indication: EYELID OEDEMA
     Dosage: UNK
     Route: 047
     Dates: start: 20100420, end: 20100426
  3. SANBETASON [Suspect]
     Dosage: UNK
     Route: 047
     Dates: start: 2010
  4. RINBETA-PF [Suspect]
     Indication: EYELID OEDEMA
     Dosage: UNK
     Route: 047
     Dates: start: 20000510, end: 20120514
  5. ECOLICIN ^SANTEN^ [Suspect]
     Indication: EYELID OEDEMA
     Dosage: UNK
     Route: 047
     Dates: start: 20100420, end: 20100426

REACTIONS (1)
  - Dermatitis contact [Recovered/Resolved]
